FAERS Safety Report 7916519-2 (Version None)
Quarter: 2011Q4

REPORT INFORMATION
  Report Type: 
  Country: None (occurrence: None)
  Receive Date: 20111116
  Receipt Date: 20111108
  Transmission Date: 20120403
  Serious: Yes (Other)
  Sender: FDA-Public Use
  Company Number: GB-JNJFOC-20111104232

PATIENT
  Age: 39 Year
  Sex: Female

DRUGS (2)
  1. RISPERDAL CONSTA [Suspect]
     Indication: SCHIZOAFFECTIVE DISORDER
     Route: 030
  2. RISPERDAL [Suspect]
     Indication: SCHIZOAFFECTIVE DISORDER
     Dosage: 2 MG IN THE MORNING AND 3 MG AT NIGHT
     Route: 048

REACTIONS (5)
  - DIVERTICULITIS [None]
  - ASTHMA [None]
  - THYROID DISORDER [None]
  - EXTRAPYRAMIDAL DISORDER [None]
  - TYPE 2 DIABETES MELLITUS [None]
